FAERS Safety Report 16728693 (Version 15)
Quarter: 2021Q3

REPORT INFORMATION
  Report Type: Report from Study
  Country: US (occurrence: US)
  Receive Date: 20190822
  Receipt Date: 20210722
  Transmission Date: 20211014
  Serious: Yes (Hospitalization)
  Sender: FDA-Public Use
  Company Number: US-TESAROUBC-2019-TSO02404-US

PATIENT
  Age: 76 Year
  Sex: Female
  Weight: 68.3 kg

DRUGS (43)
  1. NIRAPARIB [Suspect]
     Active Substance: NIRAPARIB
     Indication: OVARIAN CANCER RECURRENT
     Dosage: 200 MG, QD,  ON DAYS 1?28 OF EACH 28?DAY CYCLE
     Route: 048
     Dates: start: 20190501
  2. VITAMIN D3 [Concomitant]
     Active Substance: CHOLECALCIFEROL
     Indication: PRODUCT USED FOR UNKNOWN INDICATION
     Dosage: 1000 DF, QD
     Route: 048
     Dates: start: 2015
  3. LEXAPRO [Concomitant]
     Active Substance: ESCITALOPRAM OXALATE
     Indication: DEPRESSION
     Dosage: 10 MG, QD
     Route: 048
     Dates: start: 1999
  4. MYCOLOG?II [Concomitant]
     Active Substance: NYSTATIN\TRIAMCINOLONE ACETONIDE
     Indication: RASH MACULO-PAPULAR
     Dosage: 100000?0.1 UNIT/GM?% (0.1 %,2 IN 1 D)
     Route: 061
     Dates: start: 20190522, end: 20190528
  5. NIRAPARIB [Suspect]
     Active Substance: NIRAPARIB
     Dosage: 200 MG, QD
     Route: 048
     Dates: start: 20190619
  6. COBIMETINIB. [Suspect]
     Active Substance: COBIMETINIB
     Dosage: 60 MG, ON DAYS 1?21 OF EACH 28 DAY CYCLE
     Route: 048
     Dates: start: 20190821
  7. NAPHAZOLINE + PHENIRAMINE [Concomitant]
     Indication: DRY EYE
     Dosage: 1 DF, PRN
     Route: 047
     Dates: start: 20190515
  8. SUNSCREEN [Concomitant]
     Active Substance: HOMOSALATE\OCTINOXATE\OCTISALATE\OXYBENZONE\TITANIUM DIOXIDE
     Indication: PRODUCT USED FOR UNKNOWN INDICATION
     Dosage: 1 DF, AS REQUIRED
     Route: 061
     Dates: start: 20190505
  9. BENADRYL [Concomitant]
     Active Substance: DIPHENHYDRAMINE HYDROCHLORIDE
     Indication: INFUSION RELATED REACTION
     Dosage: 25 MG, U
     Route: 042
     Dates: start: 20200716
  10. METOPROLOL SUCCINATE. [Concomitant]
     Active Substance: METOPROLOL SUCCINATE
     Indication: CARDIOTOXICITY
     Dosage: 12.5 MG
     Route: 048
     Dates: start: 20201203
  11. COBIMETINIB. [Suspect]
     Active Substance: COBIMETINIB
     Dosage: 60 MG, QD
     Route: 048
     Dates: start: 20190618
  12. ATEZOLIZUMAB. [Suspect]
     Active Substance: ATEZOLIZUMAB
     Indication: OVARIAN CANCER RECURRENT
     Dosage: 840 MG, ON DAYS 1 AND 15 (+/?3 DAYS) OF EACH 28?DAY CYCLE
     Route: 042
     Dates: start: 20190501
  13. AMARYL [Concomitant]
     Active Substance: GLIMEPIRIDE
     Indication: TYPE 2 DIABETES MELLITUS
     Dosage: 2 MG, BID
     Route: 048
     Dates: start: 2009, end: 20190627
  14. JANUMET [Concomitant]
     Active Substance: METFORMIN HYDROCHLORIDE\SITAGLIPTIN PHOSPHATE
     Indication: TYPE 2 DIABETES MELLITUS
     Dosage: 1000 MG, BID
     Route: 048
     Dates: start: 2009, end: 20190627
  15. KLONOPIN [Concomitant]
     Active Substance: CLONAZEPAM
     Indication: DEPRESSION
     Dosage: 0.5 MG, BID
     Route: 048
     Dates: start: 1994
  16. XYZAL [Concomitant]
     Active Substance: LEVOCETIRIZINE DIHYDROCHLORIDE
     Dosage: 5 MG, QD
     Route: 048
     Dates: start: 20190621
  17. GLIMEPIRIDE. [Concomitant]
     Active Substance: GLIMEPIRIDE
     Dosage: 2 MG, BID
     Dates: start: 2009, end: 20190627
  18. IBUPROFEN. [Concomitant]
     Active Substance: IBUPROFEN
     Indication: WRIST FRACTURE
     Dosage: 600 MG, U
     Route: 048
     Dates: start: 20200826, end: 20200901
  19. GABAPENTIN. [Concomitant]
     Active Substance: GABAPENTIN
     Indication: RASH
     Dosage: 300 MG, 2 IN 1 D
     Route: 048
     Dates: start: 20190621, end: 20190624
  20. NOVOLOG [Concomitant]
     Active Substance: INSULIN ASPART
     Indication: HYPERGLYCAEMIA
     Dosage: 100 UNITS/ML
     Route: 058
     Dates: start: 20190627
  21. NIRAPARIB [Suspect]
     Active Substance: NIRAPARIB
     Dosage: 200 MG, QD
     Route: 048
     Dates: start: 20190821
  22. ATEZOLIZUMAB. [Suspect]
     Active Substance: ATEZOLIZUMAB
     Dosage: 840 MG, ON DAYS 1 AND 15 OF EACH 28 DAY CYCLE
     Route: 042
     Dates: start: 20190807
  23. ZOFRAN [Concomitant]
     Active Substance: ONDANSETRON HYDROCHLORIDE
     Indication: NAUSEA
     Dosage: 8 MG, THREE IN 1 DAY
     Route: 048
     Dates: start: 20190501
  24. TRAMADOL. [Concomitant]
     Active Substance: TRAMADOL
     Indication: ARTHRALGIA
  25. LISINOPRIL. [Concomitant]
     Active Substance: LISINOPRIL
     Dosage: 2.5 MG
     Route: 048
     Dates: start: 20201125
  26. COBIMETINIB. [Suspect]
     Active Substance: COBIMETINIB
     Indication: OVARIAN CANCER RECURRENT
     Dosage: 60 MG,60 MG, ON DAYS 1?21 OF EACH 28?DAY CYCLE
     Route: 048
     Dates: start: 20190501
  27. ATEZOLIZUMAB. [Suspect]
     Active Substance: ATEZOLIZUMAB
     Dosage: 840 MG,  1 IN 2 WK
     Route: 042
     Dates: start: 20190529
  28. IBUPROFEN. [Concomitant]
     Active Substance: IBUPROFEN
     Indication: ARTHRALGIA
  29. BENADRYL [Concomitant]
     Active Substance: DIPHENHYDRAMINE HYDROCHLORIDE
     Indication: RASH MACULO-PAPULAR
     Dosage: UNK
     Route: 048
     Dates: start: 20190517, end: 20190612
  30. DELTASONE [Concomitant]
     Active Substance: PREDNISONE
     Dosage: 70 MG, QD
     Route: 048
     Dates: start: 20190622, end: 20190624
  31. TRIAMCINOLONE [Concomitant]
     Active Substance: TRIAMCINOLONE
     Indication: PRURITUS
     Dosage: 1 DF, QID
     Route: 061
     Dates: start: 20190620
  32. TEMOVATE [Concomitant]
     Active Substance: CLOBETASOL PROPIONATE
     Indication: RASH
     Dosage: 1 IN 1 PRN
     Route: 061
     Dates: start: 20190618, end: 20190624
  33. TRAMADOL. [Concomitant]
     Active Substance: TRAMADOL
     Indication: WRIST FRACTURE
     Dosage: 50 MG, TID
     Route: 048
     Dates: start: 20200827
  34. KLONOPIN [Concomitant]
     Active Substance: CLONAZEPAM
     Indication: PANIC DISORDER
  35. LEXAPRO [Concomitant]
     Active Substance: ESCITALOPRAM OXALATE
     Indication: PANIC DISORDER
  36. LIPITOR [Concomitant]
     Active Substance: ATORVASTATIN CALCIUM
     Indication: HYPERLIPIDAEMIA
     Dosage: 20 MG, QD
     Route: 048
     Dates: start: 2018
  37. BIOTIN [Concomitant]
     Active Substance: BIOTIN
     Indication: DRY MOUTH
     Dosage: UNK
     Route: 048
     Dates: start: 20190502, end: 20190709
  38. NYSTOP [Concomitant]
     Active Substance: NYSTATIN
     Indication: RASH
     Dosage: 100000 UNIT/GM POWDER (3 IN 1 D)
     Route: 061
     Dates: start: 20190612, end: 20190612
  39. NYSTOP [Concomitant]
     Active Substance: NYSTATIN
     Dosage: 100000 UNIT/GM POWDER
     Route: 061
     Dates: start: 20190814
  40. LANTUS [Concomitant]
     Active Substance: INSULIN GLARGINE
     Indication: TYPE 2 DIABETES MELLITUS
     Dosage: 100 UNIT/ML (8 UNITS 1 IN 1 DAY)
     Route: 058
     Dates: start: 20190606
  41. TRIAMCINOLONE [Concomitant]
     Active Substance: TRIAMCINOLONE
     Dosage: 5 MG, (1 IN 1 D)
     Route: 048
     Dates: start: 20190621
  42. DELTASONE [Concomitant]
     Active Substance: PREDNISONE
     Dosage: 10 MG, QD
     Route: 048
     Dates: start: 20190619, end: 20190621
  43. XYZAL [Concomitant]
     Active Substance: LEVOCETIRIZINE DIHYDROCHLORIDE
     Indication: PRURITUS
     Dosage: 1 DF, QID
     Route: 048
     Dates: start: 20190620

REACTIONS (2)
  - Rash [Recovered/Resolved]
  - Hyperglycaemia [Not Recovered/Not Resolved]

NARRATIVE: CASE EVENT DATE: 20190624
